FAERS Safety Report 9010847 (Version 1)
Quarter: 2013Q1

REPORT INFORMATION
  Report Type: Spontaneous
  Country: US (occurrence: US)
  Receive Date: 20130109
  Receipt Date: 20130109
  Transmission Date: 20140127
  Serious: Yes (Hospitalization)
  Sender: FDA-Public Use
  Company Number: US-CELGENEUS-163-20785-12111715

PATIENT
  Age: 17 Year
  Sex: Male

DRUGS (4)
  1. THALOMID [Suspect]
     Indication: CROHN^S DISEASE
     Dosage: 50 MILLIGRAM
     Route: 048
     Dates: start: 20120608, end: 20120819
  2. STEROIDS [Concomitant]
     Indication: PRODUCT USED FOR UNKNOWN INDICATION
     Route: 065
  3. REMICADE [Concomitant]
     Indication: PRODUCT USED FOR UNKNOWN INDICATION
     Route: 065
  4. HUMIRA [Concomitant]
     Indication: PRODUCT USED FOR UNKNOWN INDICATION
     Route: 065

REACTIONS (3)
  - Hepatitis cholestatic [Unknown]
  - Fibrosis [Unknown]
  - Blood bilirubin increased [Recovered/Resolved]
